FAERS Safety Report 5808258-9 (Version None)
Quarter: 2008Q3

REPORT INFORMATION
  Report Type: 
  Country: None (occurrence: None)
  Receive Date: 20080709
  Receipt Date: 20080625
  Transmission Date: 20090109
  Serious: Yes (Other)
  Sender: FDA-Public Use
  Company Number: SPV1-2008-01386

PATIENT
  Age: 6 Year
  Sex: Female
  Weight: 23.1 kg

DRUGS (3)
  1. ADDERALL XR 10 [Suspect]
     Indication: ATTENTION DEFICIT/HYPERACTIVITY DISORDER
     Dosage: 10 MG, 1X/DAY: QD, ORAL
     Route: 048
     Dates: start: 20050101, end: 20060101
  2. CATAPRES [Concomitant]
  3. CLARITIN [Concomitant]

REACTIONS (3)
  - ANGER [None]
  - CRYING [None]
  - SUICIDAL IDEATION [None]
